FAERS Safety Report 5017595-X (Version None)
Quarter: 2006Q2

REPORT INFORMATION
  Report Type: 
  Country: None (occurrence: None)
  Receive Date: 20060601
  Receipt Date: 20060601
  Transmission Date: 20061013
  Serious: Yes (Other)
  Sender: FDA-Public Use
  Company Number: None

PATIENT

DRUGS (1)
  1. METRONIDAZOLE [Suspect]
     Indication: CROHN'S DISEASE
     Dosage: 250MG QID ORAL
     Route: 048
     Dates: start: 20060519

REACTIONS (2)
  - ARTHRALGIA [None]
  - MUSCLE SPASMS [None]
